FAERS Safety Report 5851559-9 (Version None)
Quarter: 2008Q3

REPORT INFORMATION
  Report Type: 
  Country: None (occurrence: None)
  Receive Date: 20080820
  Receipt Date: 20080813
  Transmission Date: 20090109
  Serious: Yes (Other)
  Sender: FDA-Public Use
  Company Number: DE-ELI_LILLY_AND_COMPANY-DE200808002491

PATIENT
  Age: 7 Year
  Sex: Male

DRUGS (3)
  1. STRATTERA [Suspect]
     Indication: ATTENTION DEFICIT/HYPERACTIVITY DISORDER
     Dosage: UNK, DAILY (1/D)
     Route: 048
     Dates: start: 20071213, end: 20080101
  2. STRATTERA [Suspect]
     Dosage: 35 MG, DAILY (1/D)
     Route: 048
     Dates: start: 20080101, end: 20080512
  3. STRATTERA [Suspect]
     Dosage: 40 MG, DAILY (1/D)
     Route: 048
     Dates: start: 20080513

REACTIONS (1)
  - EXTRASYSTOLES [None]
